FAERS Safety Report 11767542 (Version 2)
Quarter: 2017Q3

REPORT INFORMATION
  Report Type: Report from Study
  Country: BR (occurrence: BR)
  Receive Date: 20151123
  Receipt Date: 20170829
  Transmission Date: 20171127
  Serious: Yes (Other)
  Sender: FDA-Public Use
  Company Number: BR-ACTELION-A-CH2015-127273

PATIENT
  Age: 16 Year
  Sex: Female

DRUGS (3)
  1. ZAVESCA [Suspect]
     Active Substance: MIGLUSTAT
     Indication: NIEMANN-PICK DISEASE
     Dosage: 300 MG, BID
     Route: 048
  2. ZAVESCA [Suspect]
     Active Substance: MIGLUSTAT
     Dosage: 100 MG, TID
     Route: 048
  3. ZAVESCA [Suspect]
     Active Substance: MIGLUSTAT
     Dosage: 200 MG, TID
     Route: 048
     Dates: start: 20090516

REACTIONS (3)
  - Thrombocytopenia [Unknown]
  - Diarrhoea [Unknown]
  - Seizure [Not Recovered/Not Resolved]
